FAERS Safety Report 5480666-8 (Version None)
Quarter: 2007Q4

REPORT INFORMATION
  Report Type: 
  Country: None (occurrence: None)
  Receive Date: 20071009
  Receipt Date: 20070925
  Transmission Date: 20080405
  Serious: Yes (Death)
  Sender: FDA-Public Use
  Company Number: GB-RANBAXY-2007RR-10367

PATIENT

DRUGS (12)
  1. METRONIDAZOLE TABLETS 400MG [Suspect]
     Indication: CLOSTRIDIUM DIFFICILE COLITIS
     Dosage: 500 MG, TID
     Route: 042
     Dates: start: 20070824, end: 20070905
  2. ALFACALCIDOL [Concomitant]
  3. ASPIRIN TABLETS BP 300MG [Concomitant]
     Indication: ANGINA PECTORIS
     Dosage: 75 MG, UNK
     Route: 048
  4. CALCICHEW [Concomitant]
  5. CLOPIDOGREL [Concomitant]
     Dosage: 75 MG, UNK
     Route: 048
  6. FLUCLOXACILLIN CAPSULES BP 250MG [Concomitant]
     Indication: SKIN INFECTION
     Dosage: 500 MG, QID
     Route: 042
     Dates: end: 20070905
  7. GLYCERYL TRINITRATE [Concomitant]
  8. HYDROXYZINE [Concomitant]
  9. ISMN [Concomitant]
     Dosage: 60 MG, UNK
     Route: 048
  10. LANSOPRAZOLE 15 MG GASTRO-RESISTANT CAPSULES [Concomitant]
  11. NALOXONE [Concomitant]
  12. PARACETAMOL CAPSULES 500MG [Concomitant]

REACTIONS (1)
  - PANCREATITIS ACUTE [None]
